FAERS Safety Report 17816543 (Version 1)
Quarter: 2020Q2

REPORT INFORMATION
  Report Type: Spontaneous
  Country: US (occurrence: US)
  Receive Date: 20200522
  Receipt Date: 20200522
  Transmission Date: 20200714
  Serious: No
  Sender: FDA-Public Use
  Company Number: None

PATIENT
  Age: 47 Year
  Sex: Female
  Weight: 139.5 kg

DRUGS (1)
  1. PREGABALIN. [Suspect]
     Active Substance: PREGABALIN
     Indication: NEUROPATHY PERIPHERAL
     Dates: start: 20191101, end: 20200201

REACTIONS (5)
  - Personal relationship issue [None]
  - Suicidal ideation [None]
  - Mental impairment [None]
  - Delusion [None]
  - Paranoia [None]

NARRATIVE: CASE EVENT DATE: 20200201
